FAERS Safety Report 25176401 (Version 1)
Quarter: 2025Q2

REPORT INFORMATION
  Report Type: Report from Study
  Country: US (occurrence: US)
  Receive Date: 20250409
  Receipt Date: 20250409
  Transmission Date: 20250716
  Serious: Yes (Other)
  Sender: ABBVIE
  Company Number: US-ABBVIE-6042285

PATIENT
  Age: 51 Year
  Sex: Male
  Weight: 57.152 kg

DRUGS (3)
  1. HUMIRA [Suspect]
     Active Substance: ADALIMUMAB
     Indication: Hidradenitis
     Dosage: CITRATE FREE
     Route: 058
     Dates: start: 20220507
  2. NORVASC [Concomitant]
     Active Substance: AMLODIPINE BESYLATE
     Indication: Blood pressure measurement
  3. CELEBREX [Concomitant]
     Active Substance: CELECOXIB
     Indication: Arthritis

REACTIONS (7)
  - Osteoarthritis [Recovering/Resolving]
  - Arthralgia [Recovering/Resolving]
  - Musculoskeletal disorder [Unknown]
  - Pain in extremity [Recovering/Resolving]
  - Peripheral swelling [Unknown]
  - Trigger finger [Recovering/Resolving]
  - Arthritis [Unknown]

NARRATIVE: CASE EVENT DATE: 20230901
